FAERS Safety Report 10097632 (Version 1)
Quarter: 2014Q2

REPORT INFORMATION
  Report Type: Spontaneous
  Country: US (occurrence: US)
  Receive Date: 20140423
  Receipt Date: 20140423
  Transmission Date: 20141212
  Serious: No
  Sender: FDA-Public Use
  Company Number: US-BIOGENIDEC-2014BI034144

PATIENT
  Age: 38 Year
  Sex: Female

DRUGS (5)
  1. TECFIDERA [Suspect]
     Indication: MULTIPLE SCLEROSIS
     Dates: start: 201308
  2. NORCO [Concomitant]
  3. ZONEGRAN [Concomitant]
  4. IBUPROFEN [Concomitant]
  5. TYLENOL [Concomitant]

REACTIONS (7)
  - Nuclear magnetic resonance imaging abnormal [Recovered/Resolved]
  - Pain in extremity [Unknown]
  - Arthralgia [Unknown]
  - Weight increased [Unknown]
  - Asthenia [Unknown]
  - Discomfort [Unknown]
  - C-reactive protein increased [Unknown]
